FAERS Safety Report 15851504 (Version 1)
Quarter: 2019Q1

REPORT INFORMATION
  Report Type: Spontaneous
  Country: PT (occurrence: PT)
  Receive Date: 20190122
  Receipt Date: 20190122
  Transmission Date: 20190417
  Serious: Yes (Other)
  Sender: FDA-Public Use
  Company Number: PT-CELLTRION INC.-2019PT017888

PATIENT

DRUGS (1)
  1. INFLIXIMAB (UNKNOWN) [Suspect]
     Active Substance: INFLIXIMAB
     Indication: CROHN^S DISEASE
     Dosage: 0, 2 AND 6 WEEK, FOLLOWED BY MAINTENANCE INFUSIONS EVERY 8 WEEK
     Route: 042
     Dates: start: 2008

REACTIONS (1)
  - Acute HIV infection [Unknown]

NARRATIVE: CASE EVENT DATE: 2015
